FAERS Safety Report 13965644 (Version 3)
Quarter: 2017Q4

REPORT INFORMATION
  Report Type: Spontaneous
  Country: JP (occurrence: JP)
  Receive Date: 20170913
  Receipt Date: 20171023
  Transmission Date: 20180320
  Serious: Yes (Hospitalization, Other)
  Sender: FDA-Public Use
  Company Number: JP-PFIZER INC-2017390567

PATIENT
  Age: 76 Year
  Sex: Female

DRUGS (15)
  1. MUCOSTA [Concomitant]
     Active Substance: REBAMIPIDE
     Route: 048
  2. OPALMON [Concomitant]
     Active Substance: LIMAPROST
  3. ONEALFA [Concomitant]
     Active Substance: ALFACALCIDOL
     Route: 048
  4. PREDONINE [Concomitant]
     Active Substance: PREDNISOLONE
     Dosage: 5 MG, DAILY
     Route: 048
  5. CARERAM [Concomitant]
     Active Substance: IGURATIMOD
     Route: 048
  6. CRESTOR [Concomitant]
     Active Substance: ROSUVASTATIN CALCIUM
     Route: 048
  7. URSO [Concomitant]
     Active Substance: URSODIOL
     Route: 048
  8. CELECOX [Concomitant]
     Active Substance: CELECOXIB
     Route: 048
  9. PARIET [Concomitant]
     Active Substance: RABEPRAZOLE SODIUM
     Dosage: 5 MG, UNK
  10. KEISHIKASHAKUYAKUDAIOTO [Concomitant]
     Active Substance: HERBALS
  11. DIART [Concomitant]
     Active Substance: AZOSEMIDE
     Dosage: 30 MG, UNK
  12. AMLODIN [Concomitant]
     Active Substance: AMLODIPINE BESYLATE
     Dosage: 5 MG, UNK
  13. RHEUMATREX [Suspect]
     Active Substance: METHOTREXATE SODIUM
     Dosage: 8 MG, WEEKLY (4MG X 2 TIMES AT EVERY SATURDAY)
     Route: 048
  14. BONALON [Concomitant]
     Active Substance: ALENDRONATE SODIUM
     Route: 048
  15. SIGMART [Concomitant]
     Active Substance: NICORANDIL
     Dosage: 3 TABLETS

REACTIONS (4)
  - Bone marrow failure [Recovering/Resolving]
  - Oedema [Recovering/Resolving]
  - Laboratory test abnormal [Recovering/Resolving]
  - Haemorrhage subcutaneous [Recovering/Resolving]

NARRATIVE: CASE EVENT DATE: 20170831
